FAERS Safety Report 9384026 (Version 1)
Quarter: 2013Q3

REPORT INFORMATION
  Report Type: Spontaneous
  Country: CZ (occurrence: CZ)
  Receive Date: 20130705
  Receipt Date: 20130705
  Transmission Date: 20140515
  Serious: Yes (Death, Hospitalization, Other)
  Sender: FDA-Public Use
  Company Number: CZ-JNJFOC-20130616271

PATIENT
  Age: 67 Year
  Sex: Male
  Weight: 66 kg

DRUGS (3)
  1. REMICADE [Suspect]
     Indication: CROHN^S DISEASE
     Route: 042
     Dates: start: 20121207, end: 20130405
  2. MEDROL [Concomitant]
     Indication: CROHN^S DISEASE
     Route: 065
     Dates: start: 2002, end: 2013
  3. PENTASA [Concomitant]
     Indication: CROHN^S DISEASE
     Dosage: 3*2
     Route: 065
     Dates: start: 1989, end: 2013

REACTIONS (8)
  - Sepsis [Fatal]
  - Brain empyema [Fatal]
  - Abdominal pain [Unknown]
  - C-reactive protein increased [Unknown]
  - Lung disorder [Unknown]
  - Hydrothorax [Unknown]
  - Intervertebral discitis [Unknown]
  - Abscess [Unknown]
